FAERS Safety Report 10265132 (Version 1)
Quarter: 2014Q2

REPORT INFORMATION
  Report Type: Spontaneous
  Country: US (occurrence: US)
  Receive Date: 20140627
  Receipt Date: 20140627
  Transmission Date: 20141212
  Serious: Yes (Other)
  Sender: FDA-Public Use
  Company Number: US-AMGEN-USASP2014046543

PATIENT
  Age: 69 Year
  Sex: Female

DRUGS (1)
  1. NPLATE [Suspect]
     Indication: PLATELET COUNT DECREASED
     Dosage: UNK UNK, Q3WK
     Route: 065

REACTIONS (3)
  - Platelet count decreased [Unknown]
  - Diabetes mellitus [Unknown]
  - Weight increased [Unknown]
